FAERS Safety Report 13155029 (Version 2)
Quarter: 2017Q1

REPORT INFORMATION
  Report Type: Spontaneous
  Country: NL (occurrence: NL)
  Receive Date: 20170126
  Receipt Date: 20170216
  Transmission Date: 20170428
  Serious: Yes (Other)
  Sender: FDA-Public Use
  Company Number: NL-TEVA-733906ROM

PATIENT
  Age: 70 Year
  Sex: Male
  Weight: 63 kg

DRUGS (2)
  1. MESALAZINE [Concomitant]
     Active Substance: MESALAMINE
     Indication: COLITIS ULCERATIVE
     Dates: start: 20161212
  2. PREDNISOLON MYLAN 20 MG, TABLET BLISTER [Suspect]
     Active Substance: PREDNISOLONE
     Indication: COLITIS ULCERATIVE
     Route: 048
     Dates: start: 20161212

REACTIONS (2)
  - Dyspnoea [Not Recovered/Not Resolved]
  - Musculoskeletal chest pain [Not Recovered/Not Resolved]

NARRATIVE: CASE EVENT DATE: 20161215
